FAERS Safety Report 10330340 (Version 3)
Quarter: 2014Q3

REPORT INFORMATION
  Report Type: Spontaneous
  Country: US (occurrence: US)
  Receive Date: 20140722
  Receipt Date: 20140916
  Transmission Date: 20150326
  Serious: Yes (Other)
  Sender: FDA-Public Use
  Company Number: US-ACCORD-024060

PATIENT
  Age: 27 Year
  Sex: Female
  Weight: 53.7 kg

DRUGS (9)
  1. TACROLIMUS. [Suspect]
     Active Substance: TACROLIMUS
     Indication: RENAL TRANSPLANT
     Dosage: PRIOR TO BECOMING PREGNANT
     Route: 048
     Dates: start: 20131226
  2. VALGANCICLOVIR/VALGANCICLOVIR HYDROCHLORIDE [Suspect]
     Active Substance: VALGANCICLOVIR
     Indication: PROPHYLAXIS
     Route: 048
     Dates: start: 20131230
  3. NIFEREX [Suspect]
     Active Substance: IRON\POLYSACCHARIDES
     Indication: IRON DEFICIENCY ANAEMIA
     Route: 048
     Dates: start: 20131230, end: 20140529
  4. PANTOPRAZOLE [Suspect]
     Active Substance: PANTOPRAZOLE SODIUM
     Indication: GASTROOESOPHAGEAL REFLUX DISEASE
     Route: 048
     Dates: start: 20131230
  5. K-PHOS NEUTRAL [Suspect]
     Active Substance: POTASSIUM PHOSPHATE\SODIUM PHOSPHATE
     Indication: BLOOD PHOSPHORUS DECREASED
     Route: 048
     Dates: start: 20131230
  6. MYCOPHENOLIC ACID [Suspect]
     Active Substance: MYCOPHENOLIC ACID
     Indication: RENAL TRANSPLANT
     Dosage: 500-2000 AT VARIOUS TIMES. ON HOLD ON 05-MAY-2014 TO 20-MAY-2014. (PRIOR TO BECOMING PREGNANT)
     Route: 048
     Dates: start: 20131223, end: 20140505
  7. SULFAMETHOXAZOLE/TRIMETHOPRIM [Suspect]
     Active Substance: SULFAMETHOXAZOLE\TRIMETHOPRIM
     Indication: PROPHYLAXIS
     Dosage: 1 TAB
     Route: 048
     Dates: start: 20131230
  8. AZATHIOPRINE. [Suspect]
     Active Substance: AZATHIOPRINE
     Indication: RENAL TRANSPLANT
     Route: 048
     Dates: start: 20140529
  9. PREDNISONE. [Suspect]
     Active Substance: PREDNISONE
     Indication: RENAL TRANSPLANT
     Route: 048
     Dates: start: 20131225

REACTIONS (4)
  - White blood cell count decreased [Unknown]
  - Pregnancy [Unknown]
  - Abortion spontaneous [Unknown]
  - Maternal exposure during pregnancy [None]

NARRATIVE: CASE EVENT DATE: 20140626
